FAERS Safety Report 8065448-5 (Version None)
Quarter: 2011Q4

REPORT INFORMATION
  Report Type: 
  Country: None (occurrence: None)
  Receive Date: 20111221
  Receipt Date: 20110629
  Transmission Date: 20120403
  Serious: Yes (Disabling)
  Sender: FDA-Public Use
  Company Number: PHHY2011US58331

PATIENT
  Age: 75 Year
  Sex: Male
  Weight: 82.1 kg

DRUGS (6)
  1. IBUPROFEN (ADVIL) [Concomitant]
  2. EXJADE [Suspect]
     Indication: IRON OVERLOAD
     Dosage: 1000 MG, QD (AS NEEDED), ORAL
     Route: 048
     Dates: start: 20101112
  3. CALCIUM CARBONATE [Concomitant]
  4. NEPHRO-VITE (VITAMINS NOS) [Concomitant]
  5. ZYLOPRIM [Concomitant]
  6. NORCO [Concomitant]

REACTIONS (3)
  - DIARRHOEA [None]
  - FATIGUE [None]
  - ASTHENIA [None]
